FAERS Safety Report 7455273-8 (Version None)
Quarter: 2011Q2

REPORT INFORMATION
  Report Type: 
  Country: None (occurrence: None)
  Receive Date: 20110503
  Receipt Date: 20110427
  Transmission Date: 20111010
  Serious: Yes (Other)
  Sender: FDA-Public Use
  Company Number: PHHY2010MX50647

PATIENT
  Sex: Female
  Weight: 67 kg

DRUGS (5)
  1. ZOLEDRONIC ACID [Suspect]
     Dosage: 5 MG/100 ML PER YEAR
     Dates: start: 20100215
  2. OZONE [Concomitant]
     Dosage: UNK
  3. RANITIDINE [Concomitant]
  4. ZOLEDRONIC ACID [Suspect]
     Dosage: 5 MG/100 ML PER YEAR
     Route: 042
     Dates: start: 20110308
  5. CALCIUM [Concomitant]

REACTIONS (3)
  - DIZZINESS POSTURAL [None]
  - GAIT DISTURBANCE [None]
  - OEDEMA PERIPHERAL [None]
